FAERS Safety Report 15065512 (Version 1)
Quarter: 2018Q2

REPORT INFORMATION
  Report Type: Spontaneous
  Country: US (occurrence: US)
  Receive Date: 20180626
  Receipt Date: 20180626
  Transmission Date: 20180711
  Serious: No
  Sender: FDA-Public Use
  Company Number: US-AUROBINDO-AUR-APL-2017-37429

PATIENT
  Age: 75 Year
  Sex: Female

DRUGS (1)
  1. ZOLPIDEM TARTRATE TABLETS 5 MG [Suspect]
     Active Substance: ZOLPIDEM TARTRATE
     Indication: INSOMNIA
     Dosage: 5 MG, 1 TO 2 TABLETS AS NEEDED AT BED TIME
     Route: 048
     Dates: start: 201703

REACTIONS (2)
  - Drug ineffective [Not Recovered/Not Resolved]
  - Product substitution issue [Unknown]

NARRATIVE: CASE EVENT DATE: 201703
